FAERS Safety Report 16401796 (Version 2)
Quarter: 2019Q3

REPORT INFORMATION
  Report Type: Spontaneous
  Country: US (occurrence: US)
  Receive Date: 20190606
  Receipt Date: 20190702
  Transmission Date: 20191004
  Serious: No
  Sender: FDA-Public Use
  Company Number: US-009507513-1906USA000963

PATIENT
  Sex: Female

DRUGS (5)
  1. SPIRIVA RESPIMAT [Concomitant]
     Active Substance: TIOTROPIUM BROMIDE
  2. ASMANEX HFA [Suspect]
     Active Substance: MOMETASONE FUROATE
     Indication: CHRONIC OBSTRUCTIVE PULMONARY DISEASE
     Dosage: 1 PUFF TWICE A DAY
  3. ATORVASTATIN [Concomitant]
     Active Substance: ATORVASTATIN
  4. PANTOPRAZOLE [Concomitant]
     Active Substance: PANTOPRAZOLE
  5. OXYGEN. [Concomitant]
     Active Substance: OXYGEN

REACTIONS (2)
  - Palpitations [Recovered/Resolved]
  - Product use in unapproved indication [Unknown]
